FAERS Safety Report 18960757 (Version 2)
Quarter: 2021Q1

REPORT INFORMATION
  Report Type: Other
  Country: ZA (occurrence: ZA)
  Receive Date: 20210303
  Receipt Date: 20210326
  Transmission Date: 20210420
  Serious: Yes (Hospitalization, Other)
  Sender: FDA-Public Use
  Company Number: ZA-ROCHE-2766862

PATIENT
  Sex: Female

DRUGS (1)
  1. ACTEMRA [Suspect]
     Active Substance: TOCILIZUMAB
     Indication: RHEUMATOID ARTHRITIS
     Route: 042

REACTIONS (8)
  - COVID-19 [Unknown]
  - Myelitis transverse [Unknown]
  - Ill-defined disorder [Unknown]
  - Aspartate aminotransferase increased [Unknown]
  - Illness [Unknown]
  - Rheumatoid arthritis [Unknown]
  - Alanine aminotransferase increased [Unknown]
  - Dyspnoea [Unknown]
